FAERS Safety Report 7376604-3 (Version None)
Quarter: 2011Q1

REPORT INFORMATION
  Report Type: 
  Country: None (occurrence: None)
  Receive Date: 20110325
  Receipt Date: 20110321
  Transmission Date: 20110831
  Serious: Yes (Hospitalization, Congenital Anomaly, Other)
  Sender: FDA-Public Use
  Company Number: US-PFIZER INC-2008049844

PATIENT
  Sex: Female

DRUGS (1)
  1. ZOLOFT [Suspect]
     Route: 064
     Dates: start: 19990729

REACTIONS (10)
  - DRUG EXPOSURE DURING PREGNANCY [None]
  - TRICUSPID VALVE INCOMPETENCE [None]
  - PLEURAL EFFUSION [None]
  - PATENT DUCTUS ARTERIOSUS [None]
  - CYANOSIS [None]
  - HYPERTENSION [None]
  - PULMONARY VALVE STENOSIS [None]
  - ATRIAL SEPTAL DEFECT [None]
  - VENTRICULAR SEPTAL DEFECT [None]
  - WOUND INFECTION [None]
